FAERS Safety Report 4632393-4 (Version None)
Quarter: 2005Q2

REPORT INFORMATION
  Report Type: 
  Country: None (occurrence: None)
  Receive Date: 20050411
  Receipt Date: 20050308
  Transmission Date: 20051028
  Serious: Yes (Death)
  Sender: FDA-Public Use
  Company Number: JP-BOEHRINGER INGELHEIM PHARMMACEUTICALS, INC.-2005-BP-03687NB

PATIENT
  Age: 80 Year
  Sex: Male

DRUGS (14)
  1. SPIROPENT TABLET [Suspect]
     Indication: ASTHMA
     Route: 048
  2. THEOLONG [Concomitant]
     Route: 048
  3. NITOROL [Concomitant]
     Route: 048
  4. ASPIRIN [Concomitant]
     Route: 048
  5. FUROSEMIDE [Concomitant]
     Route: 048
  6. NU-LOTAN [Concomitant]
     Route: 048
  7. SPIRONOLACTONE [Concomitant]
     Route: 048
  8. ROKUMI-GAN [Concomitant]
     Route: 048
  9. CLARITHROMYCIN [Concomitant]
     Route: 048
  10. SENNOSIDE [Concomitant]
     Route: 048
  11. PREDNISOLONE [Concomitant]
     Route: 048
  12. TAIHO [Concomitant]
     Route: 062
  13. TULOBUTEROL [Concomitant]
     Route: 062
  14. FLUTICASONE PROPIONATE [Concomitant]
     Route: 055

REACTIONS (1)
  - VENTRICULAR FIBRILLATION [None]
